FAERS Safety Report 10196989 (Version 1)
Quarter: 2014Q2

REPORT INFORMATION
  Report Type: Spontaneous
  Country: MX (occurrence: MX)
  Receive Date: 20140527
  Receipt Date: 20140527
  Transmission Date: 20141212
  Serious: Yes (Other)
  Sender: FDA-Public Use
  Company Number: MX-SA-2014SA063496

PATIENT
  Age: 76 Year
  Sex: Male
  Weight: 62 kg

DRUGS (4)
  1. LANTUS [Suspect]
     Indication: TYPE 2 DIABETES MELLITUS
     Dosage: 22 IU (12 IU IN THE MORNING AND 10 IU AT NIGHT)
     Route: 058
     Dates: start: 2007
  2. LOFTYL [Concomitant]
     Dosage: 300 MG
     Route: 048
  3. IRIDUS [Concomitant]
     Route: 048
  4. FOLIC ACID/IRON [Concomitant]
     Route: 048

REACTIONS (5)
  - Extremity necrosis [Not Recovered/Not Resolved]
  - Renal failure chronic [Not Recovered/Not Resolved]
  - Cataract [Not Recovered/Not Resolved]
  - Hyperglycaemia [Not Recovered/Not Resolved]
  - Off label use [Unknown]
